FAERS Safety Report 4845238-4 (Version None)
Quarter: 2005Q4

REPORT INFORMATION
  Report Type: 
  Country: None (occurrence: None)
  Receive Date: 20051125
  Receipt Date: 20051111
  Transmission Date: 20060501
  Serious: Yes (Other)
  Sender: FDA-Public Use
  Company Number: HQWYE513911NOV05

PATIENT
  Age: 35 Year
  Sex: Male

DRUGS (3)
  1. EFFEXOR XR [Suspect]
  2. SUBOXONE [Suspect]
  3. WELLBUTRIN [Suspect]
     Dosage: 75 MG 2X PER 1 DAY, ORAL
     Route: 048
     Dates: start: 20050101, end: 20051001

REACTIONS (2)
  - CONVULSION [None]
  - DRUG INTERACTION [None]
